FAERS Safety Report 6546852-0 (Version None)
Quarter: 2010Q1

REPORT INFORMATION
  Report Type: 
  Country: None (occurrence: None)
  Receive Date: 20100114
  Receipt Date: 20091014
  Transmission Date: 20100710
  Serious: No
  Sender: FDA-Public Use
  Company Number: 2009BM000261

PATIENT
  Age: 42 Year
  Sex: Female
  Weight: 136.0791 kg

DRUGS (1)
  1. KUVAN [Suspect]
     Indication: PHENYLKETONURIA
     Dosage: 1300 MG;BID;PO
     Route: 048
     Dates: start: 20090926, end: 20090928

REACTIONS (6)
  - BRONCHITIS VIRAL [None]
  - COUGH [None]
  - DYSPNOEA [None]
  - HEADACHE [None]
  - NASOPHARYNGITIS [None]
  - RESPIRATORY DISORDER [None]
